FAERS Safety Report 14668455 (Version 7)
Quarter: 2018Q4

REPORT INFORMATION
  Report Type: Spontaneous
  Country: TR (occurrence: TR)
  Receive Date: 20180322
  Receipt Date: 20181217
  Transmission Date: 20190204
  Serious: Yes (Other)
  Sender: FDA-Public Use
  Company Number: TR-LPDUSPRD-20180331

PATIENT
  Age: 35 Year
  Sex: Female
  Weight: 70 kg

DRUGS (8)
  1. CORTICOSTEROIDS [Concomitant]
     Active Substance: CORTICOSTEROID NOS
     Dosage: UNKNOWN
     Route: 065
  2. FERAMAT [Concomitant]
     Dosage: UNKNOWN
     Route: 065
  3. LITHURIL [Concomitant]
     Active Substance: LITHIUM CARBONATE
     Dosage: 600 MG (300 MG, 2 IN 1 D)
     Route: 065
     Dates: start: 20050801
  4. FERINJECT [Suspect]
     Active Substance: FERRIC CARBOXYMALTOSE
     Dosage: 500 MG
     Route: 041
     Dates: start: 20170814, end: 20170814
  5. DODEX [Concomitant]
     Active Substance: CYANOCOBALAMIN
     Dosage: UNKNOWN
     Route: 042
  6. REXAPIN [Suspect]
     Active Substance: OLANZAPINE
     Dosage: 5 MG (2.5 MG, 2 IN 1 D)
     Route: 065
     Dates: start: 2017, end: 2017
  7. PIYELOSEPTYL [Concomitant]
     Active Substance: NITROFURANTOIN
     Dosage: UNKNOWN
     Route: 065
  8. CIPRO [Concomitant]
     Active Substance: CIPROFLOXACIN HYDROCHLORIDE
     Dosage: UNKNOWN
     Route: 065

REACTIONS (30)
  - Stress [Unknown]
  - Blood glucose increased [Not Recovered/Not Resolved]
  - Headache [Unknown]
  - Hot flush [Recovering/Resolving]
  - Dry skin [Not Recovered/Not Resolved]
  - Drug interaction [Unknown]
  - Hypersensitivity [Unknown]
  - Confusional state [Unknown]
  - Pyrexia [Unknown]
  - Peripheral swelling [Unknown]
  - Arthralgia [Recovered/Resolved]
  - Pain in extremity [Unknown]
  - Vasodilatation [Unknown]
  - Varicose vein [Unknown]
  - Paraesthesia [Not Recovered/Not Resolved]
  - Dyspnoea [Unknown]
  - Tachycardia [Recovered/Resolved]
  - Insomnia [Unknown]
  - Infusion site discolouration [Unknown]
  - Ear swelling [Unknown]
  - Mental impairment [Unknown]
  - Vasculitis [Recovered/Resolved]
  - Rash [Unknown]
  - Weight increased [Unknown]
  - Nasal dryness [Recovered/Resolved]
  - Eye disorder [Unknown]
  - Tension headache [Not Recovered/Not Resolved]
  - Infusion site swelling [Recovered/Resolved]
  - Hypertrichosis [Unknown]
  - Fatigue [Recovering/Resolving]

NARRATIVE: CASE EVENT DATE: 2017
